FAERS Safety Report 4426520-1 (Version None)
Quarter: 2004Q3

REPORT INFORMATION
  Report Type: 
  Country: None (occurrence: None)
  Receive Date: 20040816
  Receipt Date: 20040804
  Transmission Date: 20050211
  Serious: Yes (Other)
  Sender: FDA-Public Use
  Company Number: PHNR2004AU01292

PATIENT
  Sex: Male

DRUGS (1)
  1. ZOMETA [Suspect]
     Dates: start: 20040716

REACTIONS (2)
  - EPILEPSY [None]
  - HYPOCALCAEMIA [None]
